FAERS Safety Report 6680807-0 (Version None)
Quarter: 2010Q2

REPORT INFORMATION
  Report Type: 
  Country: None (occurrence: None)
  Receive Date: 20100414
  Receipt Date: 20100405
  Transmission Date: 20101027
  Serious: Yes (Death, Other)
  Sender: FDA-Public Use
  Company Number: JP-PFIZER INC-2010040448

PATIENT
  Age: 52 Year
  Sex: Male

DRUGS (5)
  1. AMLODIPINE [Suspect]
     Indication: ESSENTIAL HYPERTENSION
     Dosage: 5 MG, UNK
     Route: 048
     Dates: start: 20100206, end: 20100323
  2. AVAPRO [Suspect]
     Indication: ESSENTIAL HYPERTENSION
     Dosage: 200 MG, UNK
     Route: 048
     Dates: start: 20090425, end: 20100323
  3. AVAPRO [Suspect]
     Dosage: 100 MG/DAY
     Route: 048
     Dates: start: 20090329, end: 20090424
  4. LASIX [Concomitant]
     Indication: ESSENTIAL HYPERTENSION
     Dosage: 5 MG/DAY
     Route: 048
     Dates: start: 20091003, end: 20091106
  5. LASIX [Concomitant]
     Dosage: 10 MG/DAY
     Route: 048
     Dates: start: 20100306, end: 20100323

REACTIONS (2)
  - EPILEPSY [None]
  - NEAR DROWNING [None]
